FAERS Safety Report 7806890-4 (Version None)
Quarter: 2011Q4

REPORT INFORMATION
  Report Type: 
  Country: None (occurrence: None)
  Receive Date: 20111011
  Receipt Date: 20110930
  Transmission Date: 20120403
  Serious: Yes (Hospitalization)
  Sender: FDA-Public Use
  Company Number: US-KINGPHARMUSA00001-K201101161

PATIENT
  Age: 72 Year
  Sex: Male

DRUGS (4)
  1. LEUKINE [Suspect]
     Indication: MALIGNANT MELANOMA
     Dosage: 3500 MCG, TOTAL
     Route: 058
     Dates: start: 20110531, end: 20110906
  2. TAPAZOLE [Suspect]
  3. VENOFER [Concomitant]
  4. IPILIMUMAB [Suspect]
     Indication: MALIGNANT MELANOMA
     Dosage: 2961.6 MG, TOTAL
     Route: 042
     Dates: start: 20110531, end: 20110802

REACTIONS (6)
  - NAUSEA [None]
  - COLONIC OBSTRUCTION [None]
  - VOMITING [None]
  - INTUSSUSCEPTION [None]
  - NEUTROPHIL COUNT DECREASED [None]
  - WHITE BLOOD CELL COUNT DECREASED [None]
